FAERS Safety Report 5672805-0 (Version None)
Quarter: 2008Q1

REPORT INFORMATION
  Report Type: 
  Country: None (occurrence: None)
  Receive Date: 20080319
  Receipt Date: 20070607
  Transmission Date: 20080703
  Serious: No
  Sender: FDA-Public Use
  Company Number: US-KINGPHARMUSA00001-K200700701

PATIENT

DRUGS (4)
  1. ALTACE [Suspect]
     Route: 048
     Dates: start: 20020101
  2. CYTOMEL [Concomitant]
  3. XALATAN [Concomitant]
     Indication: GLAUCOMA
  4. MULTIVITAMIN /00831701/ [Concomitant]

REACTIONS (12)
  - BALANCE DISORDER [None]
  - DIZZINESS [None]
  - DRUG INTERACTION [None]
  - FALL [None]
  - FEELING ABNORMAL [None]
  - GAIT DISTURBANCE [None]
  - HEART RATE IRREGULAR [None]
  - PULSE ABNORMAL [None]
  - RIB FRACTURE [None]
  - TREMOR [None]
  - VERTIGO [None]
  - WRIST FRACTURE [None]
